FAERS Safety Report 8216889-4 (Version None)
Quarter: 2012Q1

REPORT INFORMATION
  Report Type: 
  Country: None (occurrence: None)
  Receive Date: 20120317
  Receipt Date: 20120308
  Transmission Date: 20120608
  Serious: Yes (Other)
  Sender: FDA-Public Use
  Company Number: US-AMGEN-USASP2012016561

PATIENT
  Age: 62 Year
  Sex: Female

DRUGS (7)
  1. PREDNISONE [Concomitant]
     Dosage: 2.5 DAILY
  2. FOLIC ACID [Concomitant]
     Dosage: 2 TABLETS DAILY
  3. ENBREL [Suspect]
     Indication: PRODUCT USED FOR UNKNOWN INDICATION
     Dosage: 50 MG, WEEKLY
  4. FOSAMAX [Concomitant]
     Dosage: 1 TABLET WEEKLY
  5. TRAMADOL HCL [Concomitant]
     Indication: PAIN
     Dosage: SOMETIMES DAILY
  6. SYNVISC [Concomitant]
     Dosage: UNK
  7. METHOTREXATE [Concomitant]
     Dosage: 15 MG, WEEKLY

REACTIONS (3)
  - PAIN [None]
  - IMMUNE SYSTEM DISORDER [None]
  - DISEASE PROGRESSION [None]
